FAERS Safety Report 20016236 (Version 1)
Quarter: 2021Q4

REPORT INFORMATION
  Report Type: Spontaneous
  Country: US (occurrence: None)
  Receive Date: 20211103
  Receipt Date: 20211103
  Transmission Date: 20220303
  Serious: Yes (Hospitalization)
  Sender: FDA-Public Use
  Company Number: None

PATIENT
  Sex: Male

DRUGS (1)
  1. GLATIRAMER [Suspect]
     Active Substance: GLATIRAMER
     Indication: Multiple sclerosis
     Dosage: OTHER QUANTITY : 1 SYR;?FREQUENCY : 3 TIMES A WEEK;?
     Route: 058
     Dates: start: 20210416

REACTIONS (2)
  - Hospitalisation [None]
  - Therapy interrupted [None]
